FAERS Safety Report 7833417-3 (Version None)
Quarter: 2011Q4

REPORT INFORMATION
  Report Type: 
  Country: None (occurrence: None)
  Receive Date: 20111024
  Receipt Date: 20111018
  Transmission Date: 20120403
  Serious: Yes (Other)
  Sender: FDA-Public Use
  Company Number: US-PURDUE-USA-2011-0076441

PATIENT
  Sex: Male

DRUGS (1)
  1. OXYCONTIN [Suspect]
     Indication: PRODUCT USED FOR UNKNOWN INDICATION
     Dosage: 40 MG, Q8H

REACTIONS (5)
  - NAUSEA [None]
  - BREAKTHROUGH PAIN [None]
  - HEART TRANSPLANT [None]
  - CARDIOMYOPATHY [None]
  - ANGINA PECTORIS [None]
